FAERS Safety Report 7530986-8 (Version None)
Quarter: 2011Q2

REPORT INFORMATION
  Report Type: 
  Country: None (occurrence: None)
  Receive Date: 20110608
  Receipt Date: 20091130
  Transmission Date: 20111010
  Serious: Yes (Death, Other)
  Sender: FDA-Public Use
  Company Number: US-BAYER-201012033NA

PATIENT
  Age: 60 Year
  Sex: Male

DRUGS (30)
  1. TRASYLOL [Suspect]
     Indication: ANGINA PECTORIS
     Dosage: 200 ML, UNK
     Route: 042
     Dates: start: 20010102, end: 20010102
  2. ALLOPURINOL [Concomitant]
     Dosage: 300 MG, QD
     Route: 048
  3. NITROGLYCERIN [Concomitant]
     Dosage: UNK
     Route: 042
     Dates: start: 20010102, end: 20010102
  4. IMDUR [Concomitant]
     Dosage: 30 MG, QD
     Route: 048
  5. RANITIDINE [Concomitant]
     Dosage: UNK
     Route: 042
     Dates: start: 20010102, end: 20010102
  6. CALCIUM CHLORIDE [Concomitant]
     Dosage: UNK
     Route: 042
     Dates: start: 20010102, end: 20010102
  7. TRASYLOL [Suspect]
     Indication: CORONARY ARTERY BYPASS
     Dosage: 1 ML, UNK
     Route: 042
     Dates: start: 20010102, end: 20010102
  8. TRASYLOL [Suspect]
     Dosage: PRIME 200 ML, UNK
     Route: 042
     Dates: start: 20010102, end: 20010102
  9. NORVASC [Concomitant]
     Dosage: 10 MG, QD
     Route: 048
  10. VASOPRESSIN [Concomitant]
     Dosage: UNK
     Route: 042
     Dates: start: 20010102, end: 20010102
  11. VITAMIN E [Concomitant]
     Route: 048
  12. COSOPT [Concomitant]
     Dosage: 0.5% ONE DROP BOTH EYES, BID
     Route: 047
  13. LEVOPHED [Concomitant]
     Dosage: UNK
     Route: 042
     Dates: start: 20010102, end: 20010102
  14. TRASYLOL [Suspect]
     Dosage: BOLUS 200 ML, UNK
     Route: 042
     Dates: start: 20010102, end: 20010102
  15. ZESTRIL [Concomitant]
     Dosage: 20 MG, QD
     Route: 048
  16. NITROGLYCERIN [Concomitant]
     Dosage: 0.4 MG, PRN
     Route: 060
  17. HEPARIN [Concomitant]
     Dosage: UNK
     Route: 042
     Dates: start: 20010102, end: 20010102
  18. TENORMIN [Concomitant]
     Dosage: 50 MG, QD
     Route: 048
  19. PROPOFOL [Concomitant]
     Dosage: UNK
     Route: 042
     Dates: start: 20010102, end: 20010102
  20. FENTANYL [Concomitant]
     Dosage: UNK
     Route: 042
     Dates: start: 20010102, end: 20010102
  21. EPINEPHRINE [Concomitant]
     Dosage: UNK
     Route: 042
     Dates: start: 20010102, end: 20010102
  22. PROTAMINE SULFATE [Concomitant]
     Dosage: UNK
     Route: 042
     Dates: start: 20010102, end: 20010102
  23. CEFTRIAXONE [Concomitant]
     Dosage: 1 GM, UNK
     Route: 042
     Dates: start: 20010102, end: 20010102
  24. TIMOPTIC [Concomitant]
     Route: 047
  25. DIPHENHYDRAMINE HCL [Concomitant]
     Dosage: 100 MG, UNK
  26. LIPITOR [Concomitant]
     Dosage: 20 MG, QD
     Route: 048
  27. ASPIRIN [Concomitant]
     Route: 048
  28. SOLU-CORTEF [Concomitant]
     Dosage: 100 MG, UNK
     Route: 042
     Dates: start: 20010102, end: 20010102
  29. PHENYLEPHRINE HCL [Concomitant]
     Dosage: UNK
     Route: 042
     Dates: start: 20010102, end: 20010102
  30. ROCURONIUM BROMIDE [Concomitant]
     Dosage: 50, UNK

REACTIONS (13)
  - DEATH [None]
  - MULTI-ORGAN FAILURE [None]
  - RENAL FAILURE [None]
  - RENAL IMPAIRMENT [None]
  - ANXIETY [None]
  - FEAR [None]
  - PAIN [None]
  - INJURY [None]
  - ANAPHYLACTIC REACTION [None]
  - UNEVALUABLE EVENT [None]
  - RENAL INJURY [None]
  - EMOTIONAL DISTRESS [None]
  - STRESS [None]
